FAERS Safety Report 8892601 (Version 1)
Quarter: 2012Q4

REPORT INFORMATION
  Report Type: 
  Country: US (occurrence: US)
  Receive Date: 20121107
  Receipt Date: 20121107
  Transmission Date: 20130627
  Serious: No
  Sender: FDA-Public Use
  Company Number: US-AMGEN-USASP2011061262

PATIENT
  Age: 53 Year
  Sex: Male

DRUGS (2)
  1. ENBREL [Suspect]
     Indication: RHEUMATOID ARTHRITIS
     Dosage: 50 mg, qwk
     Dates: start: 200712
  2. METHOTREXATE [Concomitant]
     Dosage: 8 mg, qwk

REACTIONS (8)
  - Rheumatoid arthritis [Recovered/Resolved]
  - Arthralgia [Recovered/Resolved]
  - Joint swelling [Recovered/Resolved]
  - Ear congestion [Recovered/Resolved]
  - Otorrhoea [Recovered/Resolved]
  - Hearing impaired [Recovered/Resolved]
  - Ear congestion [Recovered/Resolved]
  - Ear haemorrhage [Unknown]
